FAERS Safety Report 17941291 (Version 1)
Quarter: 2020Q2

REPORT INFORMATION
  Report Type: Report from Study
  Country: US (occurrence: US)
  Receive Date: 20200624
  Receipt Date: 20200624
  Transmission Date: 20200714
  Serious: Yes (Other)
  Sender: FDA-Public Use
  Company Number: US-ACTELION-A-NJ2020-206329

PATIENT
  Age: 86 Year
  Sex: Male

DRUGS (2)
  1. OPSUMIT [Suspect]
     Active Substance: MACITENTAN
     Indication: PULMONARY HYPERTENSION
     Route: 048
  2. LETAIRIS [Concomitant]
     Active Substance: AMBRISENTAN

REACTIONS (2)
  - Bone marrow failure [Unknown]
  - Condition aggravated [Unknown]
